FAERS Safety Report 10363597 (Version 1)
Quarter: 2014Q3

REPORT INFORMATION
  Report Type: Spontaneous
  Country: RU (occurrence: None)
  Receive Date: 20140731
  Receipt Date: 20140731
  Transmission Date: 20150326
  Serious: Yes (Death)
  Sender: FDA-Public Use
  Company Number: FK201402942

PATIENT
  Age: 64 Year
  Sex: Female

DRUGS (6)
  1. PROPOFOL 1% FRESENIUS (PROPOFOL) (PROPOFOL) [Suspect]
     Active Substance: PROPOFOL
     Indication: PRODUCT USED FOR UNKNOWN INDICATION
     Dosage: INTRAVENOUS (NOT OTHERWISE SPECIFIED)
  2. CEFTRIAXONE. [Concomitant]
     Active Substance: CEFTRIAXONE
  3. RELANIUM (CHLORDIAZEPOXIDE HYDROCHLORIDE) [Concomitant]
     Active Substance: CHLORDIAZEPOXIDE HYDROCHLORIDE
  4. TRAMADOL [Concomitant]
     Active Substance: TRAMADOL
  5. KETOROL (KETOROLAC TROMETHAMINE) [Concomitant]
  6. ATROPIN (ATROPINE) [Concomitant]
     Active Substance: ATROPINE

REACTIONS (1)
  - Anaphylactic shock [None]
